FAERS Safety Report 12425206 (Version 1)
Quarter: 2016Q2

REPORT INFORMATION
  Report Type: Report from Study
  Country: CA (occurrence: CA)
  Receive Date: 20160601
  Receipt Date: 20160601
  Transmission Date: 20160815
  Serious: Yes (Hospitalization)
  Sender: FDA-Public Use
  Company Number: CA-EMD SERONO-8086425

PATIENT
  Sex: Female

DRUGS (1)
  1. SAIZEN [Suspect]
     Active Substance: SOMATROPIN
     Indication: TURNER^S SYNDROME
     Route: 058
     Dates: start: 20120215, end: 2013

REACTIONS (1)
  - Intracranial pressure increased [Unknown]

NARRATIVE: CASE EVENT DATE: 2013
